FAERS Safety Report 14304951 (Version 1)
Quarter: 2017Q4

REPORT INFORMATION
  Report Type: Report from Study
  Country: JP (occurrence: JP)
  Receive Date: 20171219
  Receipt Date: 20171219
  Transmission Date: 20180321
  Serious: Yes (Death, Hospitalization, Other)
  Sender: FDA-Public Use
  Company Number: JP-OTSUKA-000851

PATIENT
  Age: 34 Year
  Sex: Female

DRUGS (5)
  1. AKINETON FOR INJECTION [Concomitant]
     Indication: PRODUCT USED FOR UNKNOWN INDICATION
     Dosage: 10 MG, QD
     Route: 030
     Dates: start: 20071028, end: 20071028
  2. SERENACE [Suspect]
     Active Substance: HALOPERIDOL
     Indication: SCHIZOPHRENIA
     Dosage: 15 MG, QD
     Route: 030
     Dates: start: 20071028, end: 20071028
  3. EFOTINON [Concomitant]
     Indication: PRODUCT USED FOR UNKNOWN INDICATION
     Dosage: 15 MG, QD
     Route: 048
     Dates: end: 20071010
  4. ARIPIPRAZOLE. [Suspect]
     Active Substance: ARIPIPRAZOLE
     Indication: SCHIZOPHRENIA
     Dosage: 6 MG, BID
     Route: 048
     Dates: start: 20071010, end: 20071028
  5. LEVOTOMIN [Concomitant]
     Active Substance: LEVOMEPROMAZINE
     Indication: SCHIZOPHRENIA
     Dosage: 25 MG, QD
     Route: 048
     Dates: end: 20071028

REACTIONS (5)
  - Delusion [Unknown]
  - Insomnia [Recovered/Resolved]
  - Psychomotor hyperactivity [Recovering/Resolving]
  - Hallucination [Unknown]
  - Arrhythmia [Fatal]

NARRATIVE: CASE EVENT DATE: 20071026
